FAERS Safety Report 14041698 (Version 2)
Quarter: 2017Q4

REPORT INFORMATION
  Report Type: Spontaneous
  Country: JP (occurrence: JP)
  Receive Date: 20171004
  Receipt Date: 20171227
  Transmission Date: 20180321
  Serious: Yes (Hospitalization, Other)
  Sender: FDA-Public Use
  Company Number: JP-SA-2017SA184984

PATIENT
  Age: 80 Year
  Sex: Male
  Weight: 71 kg

DRUGS (11)
  1. CAMPTO [Suspect]
     Active Substance: IRINOTECAN
     Indication: RECTAL CANCER
     Route: 042
     Dates: start: 20170711, end: 20170711
  2. HERBAL EXTRACT NOS [Concomitant]
     Active Substance: HERBALS
     Dosage: DOSE:1 UNIT(S)
     Route: 048
     Dates: start: 20170712, end: 20170924
  3. ZALTRAP [Suspect]
     Active Substance: ZIV-AFLIBERCEPT
     Indication: RECTAL CANCER
     Route: 042
     Dates: start: 20170711, end: 20170711
  4. ZALTRAP [Suspect]
     Active Substance: ZIV-AFLIBERCEPT
     Indication: RECTAL CANCER
     Route: 042
     Dates: start: 20170828, end: 20170828
  5. ZALTRAP [Suspect]
     Active Substance: ZIV-AFLIBERCEPT
     Indication: RECTAL CANCER
     Route: 042
     Dates: start: 20170911, end: 20170911
  6. ZALTRAP [Suspect]
     Active Substance: ZIV-AFLIBERCEPT
     Indication: RECTAL CANCER
     Route: 042
     Dates: start: 20170807, end: 20170807
  7. FLUOROURACIL. [Concomitant]
     Active Substance: FLUOROURACIL
     Indication: RECTAL CANCER
     Dosage: DOSE:3440 UNIT(S)
     Route: 042
     Dates: start: 20170911, end: 20170911
  8. FLUOROURACIL. [Concomitant]
     Active Substance: FLUOROURACIL
     Indication: RECTAL CANCER
     Dosage: DOSE:3440 UNIT(S)
     Route: 042
     Dates: start: 20170711, end: 20170711
  9. CAMPTO [Suspect]
     Active Substance: IRINOTECAN
     Indication: RECTAL CANCER
     Route: 042
     Dates: start: 20170911, end: 20170911
  10. CALCIUM LEVOFOLINATE [Concomitant]
     Active Substance: LEVOLEUCOVORIN CALCIUM
     Indication: RECTAL CANCER
     Dosage: DOSE:365 UNIT(S)
     Route: 042
     Dates: start: 20170711, end: 20170711
  11. CALCIUM LEVOFOLINATE [Concomitant]
     Active Substance: LEVOLEUCOVORIN CALCIUM
     Indication: RECTAL CANCER
     Dosage: DOSE:365 UNIT(S)
     Route: 042
     Dates: start: 20170911, end: 20170911

REACTIONS (4)
  - Interstitial lung disease [Recovering/Resolving]
  - Malaise [Unknown]
  - Stoma site haemorrhage [Recovering/Resolving]
  - Pyrexia [Recovering/Resolving]

NARRATIVE: CASE EVENT DATE: 20170919
